FAERS Safety Report 11318702 (Version 7)
Quarter: 2015Q4

REPORT INFORMATION
  Report Type: Spontaneous
  Country: FR (occurrence: FR)
  Receive Date: 20150729
  Receipt Date: 20151019
  Transmission Date: 20160304
  Serious: Yes (Hospitalization, Other)
  Sender: FDA-Public Use
  Company Number: FR-ASTRAZENECA-2015SE72310

PATIENT
  Age: 71 Year
  Sex: Female

DRUGS (16)
  1. LYRICA [Suspect]
     Active Substance: PREGABALIN
     Route: 048
     Dates: start: 20150630
  2. LOXEN LP [Concomitant]
     Active Substance: NICARDIPINE
     Route: 048
     Dates: start: 20150629, end: 20150701
  3. TENSTATEN [Concomitant]
     Active Substance: CICLETANINE HYDROCHLORIDE
     Route: 048
  4. NABUCOX [Suspect]
     Active Substance: NABUMETONE
     Indication: NECK PAIN
     Route: 048
     Dates: start: 20150625, end: 20150626
  5. LANSOPRAZOLE. [Suspect]
     Active Substance: LANSOPRAZOLE
     Indication: NECK PAIN
     Route: 048
     Dates: start: 20150625, end: 20150626
  6. PARACETAMOL [Suspect]
     Active Substance: ACETAMINOPHEN
     Route: 048
     Dates: start: 20150627, end: 20150701
  7. CODOLIPRANE [Suspect]
     Active Substance: ACETAMINOPHEN\CODEINE PHOSPHATE
     Indication: NECK PAIN
     Route: 048
     Dates: start: 20150625, end: 20150626
  8. GINKGO EXTRACT\HEPTAMINOL\TROXERUTIN [Concomitant]
     Active Substance: GINKGO\HEPTAMINOL\TROXERUTIN
     Dosage: UNK
     Route: 048
  9. NIFLUGEL [Suspect]
     Active Substance: NIFLUMIC ACID
     Indication: NECK PAIN
     Route: 062
     Dates: start: 20150625, end: 20150626
  10. LYRICA [Suspect]
     Active Substance: PREGABALIN
     Route: 048
  11. ORAMORPH [Suspect]
     Active Substance: MORPHINE SULFATE
     Dosage: 1 DF, DAILY, NON AZ PRODUCT
     Route: 048
     Dates: start: 20150630, end: 20150701
  12. APRANAX [Suspect]
     Active Substance: NAPROXEN
     Route: 048
     Dates: start: 20150627, end: 20150629
  13. TAHOR [Concomitant]
     Active Substance: ATORVASTATIN CALCIUM
     Route: 048
  14. INEXIUM [Suspect]
     Active Substance: ESOMEPRAZOLE
     Route: 048
     Dates: start: 20150627, end: 20150629
  15. TOPALGIC LP [Suspect]
     Active Substance: TRAMADOL
     Route: 048
     Dates: start: 20150627, end: 20150629
  16. THIOCOLCHICOSIDE [Suspect]
     Active Substance: THIOCOLCHICOSIDE
     Route: 048
     Dates: start: 20150630, end: 20150701

REACTIONS (9)
  - Hypochloraemia [Unknown]
  - Urine potassium decreased [Unknown]
  - Escherichia urinary tract infection [Unknown]
  - Hyponatraemia [Recovered/Resolved]
  - Vomiting [Recovered/Resolved]
  - Inappropriate antidiuretic hormone secretion [Unknown]
  - Urine chloride decreased [Unknown]
  - Creatinine urine decreased [Unknown]
  - Urine sodium decreased [Unknown]

NARRATIVE: CASE EVENT DATE: 20150701
